FAERS Safety Report 21381925 (Version 9)
Quarter: 2024Q4

REPORT INFORMATION
  Report Type: Report from Study
  Country: CO (occurrence: CO)
  Receive Date: 20220927
  Receipt Date: 20241129
  Transmission Date: 20250114
  Serious: Yes (Hospitalization, Other)
  Sender: TAKEDA
  Company Number: CO-TAKEDA-2022TUS067599

PATIENT
  Age: 5 Year
  Sex: Male
  Weight: 16 kg

DRUGS (2)
  1. VELAGLUCERASE ALFA [Suspect]
     Active Substance: VELAGLUCERASE ALFA
     Indication: Gaucher^s disease
     Dosage: 60 INTERNATIONAL UNIT/KILOGRAM, Q2WEEKS
  2. VELAGLUCERASE ALFA [Suspect]
     Active Substance: VELAGLUCERASE ALFA
     Dosage: 400 INTERNATIONAL UNIT, Q2WEEKS

REACTIONS (15)
  - Pneumonia [Recovering/Resolving]
  - Rash macular [Recovering/Resolving]
  - Epistaxis [Recovering/Resolving]
  - Weight increased [Unknown]
  - Body height increased [Unknown]
  - Abdominal distension [Unknown]
  - Weight decreased [Unknown]
  - Influenza [Unknown]
  - Discouragement [Unknown]
  - Decreased appetite [Unknown]
  - Treatment noncompliance [Unknown]
  - Insurance issue [Unknown]
  - Product prescribing error [Unknown]
  - Product dose omission issue [Unknown]
  - Inappropriate schedule of product administration [Unknown]

NARRATIVE: CASE EVENT DATE: 20220713
